FAERS Safety Report 11096269 (Version 1)
Quarter: 2015Q2

REPORT INFORMATION
  Report Type: Spontaneous
  Country: US (occurrence: US)
  Receive Date: 20150507
  Receipt Date: 20150507
  Transmission Date: 20150821
  Serious: No
  Sender: FDA-Public Use
  Company Number: US-BAYER-2015-190628

PATIENT
  Age: 68 Year
  Sex: Female

DRUGS (16)
  1. LEVOTHYROXINE [Concomitant]
     Active Substance: LEVOTHYROXINE
  2. VITAMIN D [Concomitant]
     Active Substance: CHOLECALCIFEROL
  3. ACETAMINOPHEN. [Concomitant]
     Active Substance: ACETAMINOPHEN
  4. OXYTROL FOR WOMEN [Suspect]
     Active Substance: OXYBUTYNIN
     Indication: BLADDER PAIN
     Dosage: 1 PATCH EVERY 4 DAYS
     Route: 061
  5. METOPROLOL [Concomitant]
     Active Substance: METOPROLOL
  6. ONE A DAY WOMEN^S [Concomitant]
     Active Substance: MINERALS\VITAMINS
  7. RANITIDINE [Concomitant]
     Active Substance: RANITIDINE\RANITIDINE HYDROCHLORIDE
  8. GABAPENTIN. [Concomitant]
     Active Substance: GABAPENTIN
  9. SERTRALINE [Concomitant]
     Active Substance: SERTRALINE HYDROCHLORIDE
  10. ISOSORBIDE MONONITRATE. [Concomitant]
     Active Substance: ISOSORBIDE MONONITRATE
  11. OSTEO BI-FLEX [Concomitant]
     Active Substance: CHONDROITIN SULFATE A\GLUCOSAMINE
  12. WARFARIN [Concomitant]
     Active Substance: WARFARIN
  13. VITAMIN B12 [Concomitant]
     Active Substance: CYANOCOBALAMIN
  14. LOVASTATIN. [Concomitant]
     Active Substance: LOVASTATIN
  15. LOSARTAN [Concomitant]
     Active Substance: LOSARTAN
  16. FOLIC ACID. [Concomitant]
     Active Substance: FOLIC ACID

REACTIONS (2)
  - Drug ineffective for unapproved indication [Unknown]
  - Medication error [Unknown]
